FAERS Safety Report 8129010-8 (Version None)
Quarter: 2012Q1

REPORT INFORMATION
  Report Type: 
  Country: None (occurrence: None)
  Receive Date: 20120210
  Receipt Date: 20120131
  Transmission Date: 20120608
  Serious: Yes (Death, Other)
  Sender: FDA-Public Use
  Company Number: RO-JNJFOC-20120200802

PATIENT
  Sex: Female

DRUGS (5)
  1. CORTICOSTEROID [Suspect]
     Indication: PRODUCT USED FOR UNKNOWN INDICATION
     Route: 048
  2. IMMUNOSUPPRESSANT [Suspect]
     Indication: PRODUCT USED FOR UNKNOWN INDICATION
     Route: 065
  3. AZATHIOPRINE [Suspect]
     Indication: PRODUCT USED FOR UNKNOWN INDICATION
     Route: 065
  4. INFLIXIMAB, RECOMBINANT [Suspect]
     Indication: CROHN'S DISEASE
     Route: 042
  5. LORATADINE [Concomitant]
     Indication: PREMEDICATION
     Route: 065

REACTIONS (3)
  - DRUG EFFECT DECREASED [None]
  - STAPHYLOCOCCAL SEPSIS [None]
  - DISSEMINATED INTRAVASCULAR COAGULATION [None]
